FAERS Safety Report 8062463-2 (Version None)
Quarter: 2012Q1

REPORT INFORMATION
  Report Type: 
  Country: None (occurrence: None)
  Receive Date: 20120123
  Receipt Date: 20120111
  Transmission Date: 20120608
  Serious: Yes (Hospitalization)
  Sender: FDA-Public Use
  Company Number: US-BAYER-2011-049568

PATIENT
  Age: 22 Year
  Sex: Female
  Weight: 54 kg

DRUGS (2)
  1. NSAID'S [Concomitant]
     Dosage: UNK UNK, PRN
     Route: 048
  2. YAZ [Suspect]
     Indication: CONTRACEPTION
     Dosage: UNK
     Dates: start: 20070424, end: 20071127

REACTIONS (6)
  - INJURY [None]
  - VENA CAVA EMBOLISM [None]
  - PAIN [None]
  - ANXIETY [None]
  - VENA CAVA THROMBOSIS [None]
  - EMOTIONAL DISTRESS [None]
